FAERS Safety Report 14220106 (Version 2)
Quarter: 2018Q1

REPORT INFORMATION
  Report Type: Spontaneous
  Country: US (occurrence: US)
  Receive Date: 20171123
  Receipt Date: 20180118
  Transmission Date: 20180508
  Serious: Yes (Other)
  Sender: FDA-Public Use
  Company Number: US-JNJFOC-20170920624

PATIENT
  Sex: Female
  Weight: 99.79 kg

DRUGS (2)
  1. RISPERDAL [Suspect]
     Active Substance: RISPERIDONE
     Indication: SCHIZOPHRENIA
     Route: 048
  2. RISPERDAL [Suspect]
     Active Substance: RISPERIDONE
     Indication: SCHIZOPHRENIA
     Dosage: INITIATED ON AN UNSPECIFIED DATE IN EITHER 2016 OR 2017
     Route: 048

REACTIONS (5)
  - Dysgeusia [Unknown]
  - Off label use [Unknown]
  - Schizophrenia [Unknown]
  - Drug dose omission [Unknown]
  - Incorrect dose administered [Unknown]
